FAERS Safety Report 7974713-9 (Version None)
Quarter: 2011Q4

REPORT INFORMATION
  Report Type: 
  Country: None (occurrence: None)
  Receive Date: 20111213
  Receipt Date: 20111207
  Transmission Date: 20120403
  Serious: Yes (Other)
  Sender: FDA-Public Use
  Company Number: PHEH2011US011205

PATIENT

DRUGS (1)
  1. FANAPT [Suspect]
     Dosage: 12 MG, UNK

REACTIONS (2)
  - NEUTROPHIL COUNT DECREASED [None]
  - PANCYTOPENIA [None]
